FAERS Safety Report 7633768-1 (Version None)
Quarter: 2011Q3

REPORT INFORMATION
  Report Type: 
  Country: None (occurrence: None)
  Receive Date: 20110725
  Receipt Date: 20110718
  Transmission Date: 20111222
  Serious: Yes (Death, Life-Threatening)
  Sender: FDA-Public Use
  Company Number: DE-CELGENEUS-062-50794-11060021

PATIENT
  Age: 18 Year
  Sex: Male
  Weight: 70 kg

DRUGS (2)
  1. VIDAZA [Suspect]
     Indication: MALIGNANT MELANOMA
     Route: 050
  2. TEMOZOLOMIDE [Concomitant]
     Route: 065

REACTIONS (2)
  - DEATH [None]
  - METASTASES TO CENTRAL NERVOUS SYSTEM [None]
